FAERS Safety Report 19043422 (Version 1)
Quarter: 2021Q1

REPORT INFORMATION
  Report Type: Spontaneous
  Country: US (occurrence: US)
  Receive Date: 20210323
  Receipt Date: 20210323
  Transmission Date: 20210420
  Serious: Yes (Hospitalization, Other)
  Sender: FDA-Public Use
  Company Number: US-PFIZER INC-2021296378

PATIENT
  Age: 4 Year
  Sex: Male

DRUGS (1)
  1. CRIZOTINIB [Suspect]
     Active Substance: CRIZOTINIB
     Indication: NEUROBLASTOMA
     Dosage: UNK

REACTIONS (5)
  - Neutrophil count abnormal [Unknown]
  - Secretion discharge [Unknown]
  - Oesophagitis [Unknown]
  - Thrombosis [Unknown]
  - Off label use [Unknown]
